FAERS Safety Report 4699939-1 (Version None)
Quarter: 2005Q2

REPORT INFORMATION
  Report Type: 
  Country: None (occurrence: None)
  Receive Date: 20050624
  Receipt Date: 20050614
  Transmission Date: 20051028
  Serious: Yes (Hospitalization)
  Sender: FDA-Public Use
  Company Number: JP-ABBOTT-05P-087-0303269-00

PATIENT
  Age: 10 Year
  Sex: Female

DRUGS (3)
  1. CEFZON [Suspect]
     Indication: NASOPHARYNGITIS
     Route: 048
     Dates: start: 20050606
  2. SALICYLAMIDE [Concomitant]
     Indication: DRUG USE FOR UNKNOWN INDICATION
     Dates: start: 20050606
  3. TRANEXAMIC ACID [Concomitant]
     Indication: DRUG USE FOR UNKNOWN INDICATION
     Dates: start: 20050606

REACTIONS (2)
  - ANAPHYLACTIC SHOCK [None]
  - VOMITING [None]
